FAERS Safety Report 7495678-2 (Version None)
Quarter: 2011Q2

REPORT INFORMATION
  Report Type: 
  Country: None (occurrence: None)
  Receive Date: 20110523
  Receipt Date: 20110518
  Transmission Date: 20111010
  Serious: No
  Sender: FDA-Public Use
  Company Number: US-PFIZER INC-2011107598

PATIENT
  Sex: Female
  Weight: 48.98 kg

DRUGS (6)
  1. ASPIRIN [Concomitant]
     Dosage: 81 MG, DAILY
  2. CHANTIX [Suspect]
     Dosage: 0.5 MG, 2X/DAY
     Route: 048
     Dates: start: 20110501, end: 20110501
  3. CALCIUM WITH VITAMIN D [Concomitant]
     Dosage: UNK
  4. CHANTIX [Suspect]
     Indication: SMOKING CESSATION THERAPY
     Dosage: 0.5 MG, DAILY
     Route: 048
     Dates: start: 20110503, end: 20110501
  5. ASCORBIC ACID [Concomitant]
     Dosage: UNK
  6. CHANTIX [Suspect]
     Dosage: 1 MG, 2X/DAY
     Route: 048
     Dates: start: 20110501

REACTIONS (4)
  - NAUSEA [None]
  - RASH [None]
  - VOMITING [None]
  - PRURITUS [None]
